FAERS Safety Report 21885860 (Version 1)
Quarter: 2023Q1

REPORT INFORMATION
  Report Type: Spontaneous
  Country: US (occurrence: US)
  Receive Date: 20230119
  Receipt Date: 20230119
  Transmission Date: 20230418
  Serious: No
  Sender: FDA-Public Use
  Company Number: US-GALDERMA-US2022004552

PATIENT

DRUGS (1)
  1. ADAPALENE\BENZOYL PEROXIDE [Suspect]
     Active Substance: ADAPALENE\BENZOYL PEROXIDE
     Indication: Acne
     Dosage: 1 DOSAGE FORM, QD, 1X PER DAY AT NIGHT
     Route: 061
     Dates: start: 20220318, end: 20220328

REACTIONS (4)
  - Skin irritation [Unknown]
  - Skin exfoliation [Unknown]
  - Pruritus [Unknown]
  - Eye pain [Unknown]

NARRATIVE: CASE EVENT DATE: 20220327
